FAERS Safety Report 16269113 (Version 1)
Quarter: 2019Q2

REPORT INFORMATION
  Report Type: Spontaneous
  Country: US (occurrence: US)
  Receive Date: 20190503
  Receipt Date: 20190503
  Transmission Date: 20190711
  Serious: No
  Sender: FDA-Public Use
  Company Number: US-SUN PHARMACEUTICAL INDUSTRIES LTD-2018R1-199124

PATIENT
  Sex: Female

DRUGS (2)
  1. GUAIFENESIN. [Suspect]
     Active Substance: GUAIFENESIN
     Indication: SECRETION DISCHARGE
  2. GUAIFENESIN. [Suspect]
     Active Substance: GUAIFENESIN
     Indication: COUGH
     Dosage: UNK
     Route: 065
     Dates: start: 201811

REACTIONS (1)
  - Drug ineffective [Unknown]

NARRATIVE: CASE EVENT DATE: 201811
